FAERS Safety Report 8303658 (Version 2)
Quarter: 2013Q2

REPORT INFORMATION
  Report Type: Spontaneous
  Country: US (occurrence: US)
  Receive Date: 20111220
  Receipt Date: 20130429
  Transmission Date: 20140414
  Serious: Yes (Other)
  Sender: FDA-Public Use
  Company Number: US-RB-035516-11

PATIENT
  Age: 42 Year
  Sex: Male

DRUGS (3)
  1. SUBOXONE FILM [Suspect]
     Indication: DRUG DEPENDENCE
     Dosage: SUBOXONE FILM
     Route: 048
     Dates: start: 201107, end: 201211
  2. SUBOXONE FILM [Suspect]
     Dosage: SUBOXONE FILM; 1/4 STRIP
     Route: 048
  3. XANAX [Concomitant]
     Indication: PRODUCT USED FOR UNKNOWN INDICATION
     Route: 048

REACTIONS (6)
  - Suicidal ideation [Recovered/Resolved]
  - Underdose [Not Recovered/Not Resolved]
  - Abnormal dreams [Recovered/Resolved]
  - Euphoric mood [Recovered/Resolved]
  - Wrong technique in drug usage process [Not Recovered/Not Resolved]
  - Intentional drug misuse [Unknown]
